FAERS Safety Report 5399830-1 (Version None)
Quarter: 2007Q3

REPORT INFORMATION
  Report Type: 
  Country: None (occurrence: None)
  Receive Date: 20070730
  Receipt Date: 20070723
  Transmission Date: 20080115
  Serious: Yes (Hospitalization)
  Sender: FDA-Public Use
  Company Number: PHEH2007US03962

PATIENT
  Age: 40 Year
  Sex: Female

DRUGS (2)
  1. NEXIUM [Concomitant]
     Indication: DYSPEPSIA
  2. ZELNORM [Suspect]
     Indication: IRRITABLE BOWEL SYNDROME
     Dosage: 6 MG, QD
     Route: 048
     Dates: start: 20061219, end: 20070201

REACTIONS (5)
  - APPENDICECTOMY [None]
  - APPENDIX DISORDER [None]
  - BACK PAIN [None]
  - DYSPEPSIA [None]
  - INTESTINAL STENOSIS [None]
